FAERS Safety Report 14353885 (Version 2)
Quarter: 2018Q1

REPORT INFORMATION
  Report Type: Spontaneous
  Country: US (occurrence: US)
  Receive Date: 20180105
  Receipt Date: 20180131
  Transmission Date: 20180509
  Serious: Yes (Hospitalization, Other)
  Sender: FDA-Public Use
  Company Number: US-VISTAPHARM, INC.-VER201712-001634

PATIENT
  Age: 14 Year
  Sex: Female

DRUGS (1)
  1. OXYCODONE [Suspect]
     Active Substance: OXYCODONE
     Indication: PRODUCT USED FOR UNKNOWN INDICATION
     Route: 048

REACTIONS (12)
  - Akathisia [Recovering/Resolving]
  - Gait inability [Recovering/Resolving]
  - Toxic encephalopathy [Recovering/Resolving]
  - Opisthotonus [Recovering/Resolving]
  - Ballismus [Recovering/Resolving]
  - Dysstasia [Recovering/Resolving]
  - Injury [Unknown]
  - Mental status changes [Recovering/Resolving]
  - Respiratory rate decreased [Recovering/Resolving]
  - Joint instability [Recovering/Resolving]
  - Movement disorder [Recovering/Resolving]
  - Pulse absent [Recovered/Resolved]
